FAERS Safety Report 17935131 (Version 1)
Quarter: 2020Q2

REPORT INFORMATION
  Report Type: Spontaneous
  Country: US (occurrence: US)
  Receive Date: 20200624
  Receipt Date: 20200624
  Transmission Date: 20200714
  Serious: No
  Sender: FDA-Public Use
  Company Number: US-PFIZER INC-2020181104

PATIENT
  Age: 44 Year
  Sex: Female

DRUGS (1)
  1. LYRICA [Suspect]
     Active Substance: PREGABALIN
     Indication: POLYNEUROPATHY
     Dosage: 50 MG, 2X/DAY (TAKE 1 CAPSULE (50 MG TOTAL) BY MOUTH 2 (TWO) TIMES DAILY)
     Route: 048

REACTIONS (1)
  - Pain in extremity [Unknown]
